FAERS Safety Report 26075063 (Version 1)
Quarter: 2025Q4

REPORT INFORMATION
  Report Type: Spontaneous
  Country: US (occurrence: None)
  Receive Date: 20251120
  Receipt Date: 20251120
  Transmission Date: 20260119
  Serious: Yes (Life-Threatening, Hospitalization)
  Sender: FDA-CTU
  Company Number: None

PATIENT
  Age: 94 Year
  Sex: Female
  Weight: 45.3 kg

DRUGS (2)
  1. TENECTEPLASE [Suspect]
     Active Substance: TENECTEPLASE
     Dates: start: 20251105, end: 20251105
  2. ASPIRIN [Suspect]
     Active Substance: ASPIRIN

REACTIONS (4)
  - Cerebral haemorrhage [None]
  - Blood pressure increased [None]
  - Contraindicated product administered [None]
  - Increased dose administered [None]

NARRATIVE: CASE EVENT DATE: 20251106
